FAERS Safety Report 5202049-8 (Version None)
Quarter: 2007Q1

REPORT INFORMATION
  Report Type: 
  Country: None (occurrence: None)
  Receive Date: 20070109
  Receipt Date: 20061228
  Transmission Date: 20070707
  Serious: Yes (Other)
  Sender: FDA-Public Use
  Company Number: PHBS2006TR20082

PATIENT
  Age: 48 Year
  Sex: Female
  Weight: 71 kg

DRUGS (2)
  1. ZOMETA [Suspect]
     Indication: OSTEOPOROSIS
     Dosage: 4 MG, EVERY 3 MONTHS
     Route: 042
     Dates: end: 20060711
  2. FEMARA [Concomitant]
     Dosage: 2.5 MG/D
     Route: 048
     Dates: start: 20050623

REACTIONS (2)
  - OSTEOMYELITIS CHRONIC [None]
  - PERIODONTAL DISEASE [None]
